FAERS Safety Report 8192104-5 (Version None)
Quarter: 2012Q1

REPORT INFORMATION
  Report Type: 
  Country: None (occurrence: None)
  Receive Date: 20120307
  Receipt Date: 20120302
  Transmission Date: 20120608
  Serious: Yes (Other)
  Sender: FDA-Public Use
  Company Number: AU-PFIZER INC-2012055875

PATIENT
  Sex: Female

DRUGS (1)
  1. DEPO-PROVERA [Suspect]
     Indication: CONTRACEPTION
     Dosage: UNK
     Dates: start: 20120301

REACTIONS (6)
  - TREMOR [None]
  - VOMITING [None]
  - EYE IRRITATION [None]
  - VISION BLURRED [None]
  - URTICARIA [None]
  - NAUSEA [None]
